FAERS Safety Report 4918538-7 (Version None)
Quarter: 2006Q1

REPORT INFORMATION
  Report Type: 
  Country: None (occurrence: None)
  Receive Date: 20060221
  Receipt Date: 20060221
  Transmission Date: 20060701
  Serious: Yes (Other)
  Sender: FDA-Public Use
  Company Number: None

PATIENT
  Age: 46 Year
  Sex: Male
  Weight: 87.0906 kg

DRUGS (2)
  1. LEVITRA [Suspect]
     Indication: ERECTILE DYSFUNCTION
     Dosage: 10 MG ONE HOUR PRE SEX PO
     Route: 048
     Dates: start: 20060120, end: 20060120
  2. LEVITRA [Suspect]
     Indication: ERECTILE DYSFUNCTION
     Dosage: 10 MG ONE HOUR PRE SEX PO
     Route: 048
     Dates: start: 20060121, end: 20060121

REACTIONS (2)
  - PAINFUL ERECTION [None]
  - PENIS DISORDER [None]
